FAERS Safety Report 9415513 (Version 2)
Quarter: 2013Q3

REPORT INFORMATION
  Report Type: Spontaneous
  Country: US (occurrence: US)
  Receive Date: 20130723
  Receipt Date: 20130807
  Transmission Date: 20140515
  Serious: Yes (Other)
  Sender: FDA-Public Use
  Company Number: US-PFIZER INC-2013213400

PATIENT
  Age: 77 Year
  Sex: Female
  Weight: 49.89 kg

DRUGS (4)
  1. LYRICA [Suspect]
     Indication: BACK PAIN
     Dosage: 100 MG (STRENGTH 50MG), DAILY
     Dates: start: 201307, end: 201307
  2. LYRICA [Suspect]
     Indication: PAIN
  3. LYRICA [Suspect]
     Indication: INTERVERTEBRAL DISC PROTRUSION
  4. RECLAST [Concomitant]
     Indication: OSTEOPOROSIS
     Dosage: UNK, YEARLY

REACTIONS (6)
  - Intentional drug misuse [Unknown]
  - Nervous system disorder [Unknown]
  - Memory impairment [Unknown]
  - Gait disturbance [Unknown]
  - Dizziness [Unknown]
  - Malaise [Unknown]
